FAERS Safety Report 18000489 (Version 1)
Quarter: 2020Q3

REPORT INFORMATION
  Report Type: Spontaneous
  Country: US (occurrence: US)
  Receive Date: 20200709
  Receipt Date: 20200709
  Transmission Date: 20201103
  Serious: No
  Sender: FDA-Public Use
  Company Number: US-AMGEN-USASP2020108687

PATIENT
  Age: 77 Year
  Sex: Male

DRUGS (1)
  1. OTEZLA [Suspect]
     Active Substance: APREMILAST
     Indication: PSORIASIS
     Dosage: UNK
     Route: 065
     Dates: start: 202006, end: 2020

REACTIONS (3)
  - Diarrhoea [Recovered/Resolved]
  - Intentional product misuse [Unknown]
  - Headache [Recovered/Resolved]

NARRATIVE: CASE EVENT DATE: 202006
